FAERS Safety Report 15310445 (Version 2)
Quarter: 2018Q3

REPORT INFORMATION
  Report Type: Spontaneous
  Country: BR (occurrence: BR)
  Receive Date: 20180823
  Receipt Date: 20180906
  Transmission Date: 20181010
  Serious: Yes (Death, Hospitalization, Other)
  Sender: FDA-Public Use
  Company Number: BR-ROCHE-2172088

PATIENT
  Sex: Female
  Weight: 45 kg

DRUGS (23)
  1. VECTIBIX [Suspect]
     Active Substance: PANITUMUMAB
     Indication: COLON CANCER METASTATIC
     Dosage: IN 100ML OF SALINE SOLUTION FOR 1 HOUR
     Route: 042
     Dates: start: 20180622
  2. DEXAMETHASONE. [Concomitant]
     Active Substance: DEXAMETHASONE
     Dosage: FOR 3 DAYS AFTER THE CHEMOTHERAPY
     Route: 065
  3. VITAMIN E [Concomitant]
     Active Substance: .ALPHA.-TOCOPHEROL
     Dosage: 1 TABLET IN THE MORNING;
     Route: 065
  4. ATLANSIL [Concomitant]
     Active Substance: AMIODARONE
     Dosage: TABLET?IN THE MORNING;
     Route: 065
  5. DIGESAN [Concomitant]
     Active Substance: BROMOPRIDE
  6. ACETYLSALICYLIC ACID [Concomitant]
     Active Substance: ASPIRIN
  7. AMLODIPINE [Concomitant]
     Active Substance: AMLODIPINE BESYLATE
     Dosage: 1 TABLET IN THE MORNING
     Route: 065
  8. VONAU [Concomitant]
     Active Substance: ONDANSETRON HYDROCHLORIDE
     Dosage: FOR 3 DAYS AFTER THE CHEMOTHERAPY
     Route: 065
  9. CONCOR [Concomitant]
     Active Substance: BISOPROLOL FUMARATE
  10. FAULDLEUCO [Suspect]
     Active Substance: LEUCOVORIN CALCIUM
     Indication: COLON CANCER METASTATIC
     Dosage: IN 250ML OF SALINE SOLUTION FOR 1 HOUR
     Route: 042
     Dates: start: 20170220
  11. ALENDRONATE SODIUM. [Concomitant]
     Active Substance: ALENDRONATE SODIUM
     Route: 065
  12. FAULDFLUOR [Suspect]
     Active Substance: FLUOROURACIL
     Indication: COLON CANCER METASTATIC
     Dosage: 50ML SS FOR 15MIN + INFUSION PUMP 3436.8MG FOR 46H
     Route: 042
     Dates: start: 20170220
  13. ATENOLOL. [Concomitant]
     Active Substance: ATENOLOL
     Dosage: 1 TABLET IN THE MORNING
     Route: 065
  14. OMEPRAZOLE. [Concomitant]
     Active Substance: OMEPRAZOLE
     Dosage: 1 TABLET IN FASTING
     Route: 065
  15. ZOLPIDEM [Concomitant]
     Active Substance: ZOLPIDEM\ZOLPIDEM TARTRATE
     Dosage: 1 TABLET AT NIGHT
     Route: 065
  16. CRANBERRY. [Concomitant]
     Active Substance: CRANBERRY
     Route: 065
  17. TECNOTECAN [Suspect]
     Active Substance: IRINOTECAN HYDROCHLORIDE
     Indication: COLON CANCER METASTATIC
     Dosage: IN 250ML OF SALINE SOLUTION FOR 90 MINUTES
     Route: 042
     Dates: start: 20170220
  18. FERROUS SULFATE. [Concomitant]
     Active Substance: FERROUS SULFATE
     Dosage: 1 TABLET IN THE AFTERNOON
     Route: 065
  19. AVASTIN [Suspect]
     Active Substance: BEVACIZUMAB
     Indication: COLON CANCER METASTATIC
     Dosage: IN 100ML OF SALINE SOLUTION FOR 30 MINUTES
     Route: 042
     Dates: start: 20170220
  20. TECNOTECAN [Suspect]
     Active Substance: IRINOTECAN HYDROCHLORIDE
     Dosage: IN 250ML OF SALINE SOLUTION FOR 90 MINUTES
     Route: 042
     Dates: start: 20180622
  21. DOMPERIDONE [Concomitant]
     Active Substance: DOMPERIDONE
     Route: 065
  22. LASIX [Concomitant]
     Active Substance: FUROSEMIDE
  23. LIPITOR [Concomitant]
     Active Substance: ATORVASTATIN CALCIUM

REACTIONS (15)
  - Chest pain [Unknown]
  - Ventricular dysfunction [Unknown]
  - Dyspnoea [Unknown]
  - Pneumonia [Unknown]
  - Coronary artery disease [Unknown]
  - Neutropenia [Unknown]
  - Death [Fatal]
  - Pleural effusion [Unknown]
  - Cardiac failure [Unknown]
  - Condition aggravated [Unknown]
  - Vomiting [Unknown]
  - Respiratory failure [Unknown]
  - Acute kidney injury [Unknown]
  - Diarrhoea [Unknown]
  - Escherichia infection [Unknown]
